FAERS Safety Report 19505073 (Version 1)
Quarter: 2021Q3

REPORT INFORMATION
  Report Type: Spontaneous
  Country: US (occurrence: US)
  Receive Date: 20210707
  Receipt Date: 20210707
  Transmission Date: 20211014
  Serious: Yes (Other)
  Sender: FDA-Public Use
  Company Number: None

PATIENT
  Age: 27 Year
  Sex: Female
  Weight: 49.5 kg

DRUGS (7)
  1. MIDAZOLAM. [Suspect]
     Active Substance: MIDAZOLAM
     Indication: ENDOSCOPY
     Route: 042
     Dates: start: 20210706, end: 20210706
  2. FENTANYL. [Suspect]
     Active Substance: FENTANYL
     Indication: COLONOSCOPY
     Route: 042
     Dates: start: 20210706, end: 20210706
  3. FENTANYL. [Concomitant]
     Active Substance: FENTANYL
     Dates: start: 20210706, end: 20210706
  4. MIDAZOLAM. [Concomitant]
     Active Substance: MIDAZOLAM
     Dates: start: 20210706, end: 20210706
  5. DIPHENHYDRAMINE. [Concomitant]
     Active Substance: DIPHENHYDRAMINE
     Dates: start: 20210706, end: 20210706
  6. MIDAZOLAM. [Suspect]
     Active Substance: MIDAZOLAM
     Indication: COLONOSCOPY
     Route: 042
     Dates: start: 20210706, end: 20210706
  7. FENTANYL. [Suspect]
     Active Substance: FENTANYL
     Indication: ENDOSCOPY
     Route: 042
     Dates: start: 20210706, end: 20210706

REACTIONS (3)
  - Screaming [None]
  - Therapeutic product effect incomplete [None]
  - Product quality issue [None]

NARRATIVE: CASE EVENT DATE: 20210706
